FAERS Safety Report 10489295 (Version 1)
Quarter: 2014Q3

REPORT INFORMATION
  Report Type: Spontaneous
  Country: US (occurrence: None)
  Receive Date: 20140815
  Receipt Date: 20140815
  Transmission Date: 20150326
  Serious: Yes (Other)
  Sender: FDA-Public Use
  Company Number: ADR-2013-02096

PATIENT
  Sex: Male

DRUGS (1)
  1. BACLOFEN INTRATHECAL 2000MCG/ML [Suspect]
     Active Substance: BACLOFEN
     Indication: MUSCLE SPASTICITY

REACTIONS (7)
  - Implant site infection [None]
  - Implant site cellulitis [None]
  - Implant site induration [None]
  - Implant site erythema [None]
  - Drug withdrawal syndrome [None]
  - Muscle spasticity [None]
  - Urinary tract infection [None]
